FAERS Safety Report 9843998 (Version 1)
Quarter: 2013Q4

REPORT INFORMATION
  Report Type: Spontaneous
  Country: US (occurrence: None)
  Receive Date: 20131223
  Receipt Date: 20131223
  Transmission Date: 20140711
  Serious: Yes (Other)
  Sender: FDA-Public Use
  Company Number: 1000050773

PATIENT
  Age: 72 Year
  Sex: Female

DRUGS (7)
  1. LINZESS (LINACLOTIDE) (145 MICROGRAM, CAPSULES) [Suspect]
     Indication: CONSTIPATION
     Route: 048
     Dates: start: 201309
  2. NOVOLOG (INSULIN ASPART) (INSULIN ASPART) [Concomitant]
  3. LANTUS (INSULIN GLARGINE) (INSULIN GLARGINE) [Concomitant]
  4. NIFEDIAC (NIFEDIPINE) (NIFEDIPINE) [Concomitant]
  5. SIMVASTATIN (SIMVASTATIN) [Concomitant]
  6. LISINOPRIL (LISINOPRIL) [Concomitant]
  7. CLONAZEPAM (CLONAZEPAM) [Concomitant]

REACTIONS (1)
  - Diarrhoea [None]
